FAERS Safety Report 5837329-6 (Version None)
Quarter: 2008Q3

REPORT INFORMATION
  Report Type: 
  Country: None (occurrence: None)
  Receive Date: 20080807
  Receipt Date: 20080726
  Transmission Date: 20090109
  Serious: Yes (Hospitalization, Other)
  Sender: FDA-Public Use
  Company Number: US-PFIZER INC-2008062362

PATIENT
  Sex: Female
  Weight: 74.8 kg

DRUGS (3)
  1. GEODON [Suspect]
     Indication: SCHIZOAFFECTIVE DISORDER
  2. ATENOLOL [Concomitant]
  3. CLONAZEPAM [Concomitant]

REACTIONS (19)
  - ABASIA [None]
  - ABNORMAL BEHAVIOUR [None]
  - AFFECT LABILITY [None]
  - BIPOLAR DISORDER [None]
  - DIZZINESS [None]
  - FATIGUE [None]
  - FEELING ABNORMAL [None]
  - HALLUCINATION [None]
  - HALLUCINATION, AUDITORY [None]
  - HALLUCINATION, VISUAL [None]
  - IMMOBILE [None]
  - INSOMNIA [None]
  - MALAISE [None]
  - MEMORY IMPAIRMENT [None]
  - MIDDLE INSOMNIA [None]
  - NERVOUS SYSTEM DISORDER [None]
  - SCHIZOPHRENIFORM DISORDER [None]
  - STRESS [None]
  - VISUAL IMPAIRMENT [None]
